FAERS Safety Report 4611100-5 (Version None)
Quarter: 2005Q1

REPORT INFORMATION
  Report Type: 
  Country: None (occurrence: None)
  Receive Date: 20050316
  Receipt Date: 20050316
  Transmission Date: 20050727
  Serious: Yes (Hospitalization, Other)
  Sender: FDA-Public Use
  Company Number: None

PATIENT
  Sex: Female
  Weight: 65 kg

DRUGS (20)
  1. DIFLUCAN [Suspect]
     Dosage: 100 MG PO     1 DOSE
     Route: 048
     Dates: start: 20050303
  2. MORPHINE [Concomitant]
  3. CEFEPIME [Concomitant]
  4. VANCOMYCIN [Concomitant]
  5. NYSTATIN [Concomitant]
  6. PERIGUARD (CHLORHEXIDINE ORAL RINSE) [Concomitant]
  7. AMPHO B (LIPOSOMAL) [Concomitant]
  8. BENADRYL [Concomitant]
  9. ATIVAN DEMEROL [Concomitant]
  10. ZOFRAN [Concomitant]
  11. ALLOPURINOL [Concomitant]
  12. CALCIUM CARB CHEW TABS [Concomitant]
  13. COLACE [Concomitant]
  14. ALLEGRA-D [Concomitant]
  15. CLARITIN [Concomitant]
  16. ALBUTEROL NEBULIZER TREATMENTS [Concomitant]
  17. DEXAMETHASONE EYE DROPS [Concomitant]
  18. EMLA MIRALAX [Concomitant]
  19. HEPARIN [Concomitant]
  20. AFRIN [Concomitant]

REACTIONS (3)
  - OEDEMA MUCOSAL [None]
  - RASH MORBILLIFORM [None]
  - STOMATITIS [None]
